FAERS Safety Report 4917223-5 (Version None)
Quarter: 2006Q1

REPORT INFORMATION
  Report Type: 
  Country: None (occurrence: None)
  Receive Date: 20060221
  Receipt Date: 20050930
  Transmission Date: 20060701
  Serious: Yes (Death)
  Sender: FDA-Public Use
  Company Number: US-MERCK-0510USA01943

PATIENT
  Age: 74 Year
  Sex: Female
  Weight: 77 kg

DRUGS (13)
  1. VIOXX [Suspect]
     Indication: ARTHRALGIA
     Route: 048
     Dates: start: 20010306, end: 20010411
  2. ACCUPRIL [Concomitant]
     Route: 065
  3. ACTOS [Concomitant]
     Route: 065
  4. ALBUTEROL [Concomitant]
     Route: 065
  5. COMBIVENT [Concomitant]
     Route: 065
  6. HYDROCODONE HYDROCHLORIDE [Concomitant]
     Route: 065
  7. KLOR-CON [Concomitant]
     Route: 065
  8. LANOXIN [Concomitant]
     Route: 065
  9. [THERAPY UNSPECIFIED] [Concomitant]
     Route: 065
  10. RANITIDINE [Concomitant]
     Route: 065
  11. THEOPHYLLINE [Concomitant]
     Route: 065
  12. TRAZODONE HYDROCHLORIDE [Concomitant]
     Route: 065
  13. ZOCOR [Concomitant]
     Route: 065

REACTIONS (4)
  - ACUTE MYOCARDIAL INFARCTION [None]
  - ARTERIOSCLEROSIS CORONARY ARTERY [None]
  - CHRONIC OBSTRUCTIVE PULMONARY DISEASE [None]
  - DIABETES MELLITUS [None]
